FAERS Safety Report 19066765 (Version 2)
Quarter: 2021Q2

REPORT INFORMATION
  Report Type: Spontaneous
  Country: US (occurrence: US)
  Receive Date: 20210329
  Receipt Date: 20210408
  Transmission Date: 20210717
  Serious: Yes (Other)
  Sender: FDA-Public Use
  Company Number: US-BEH-2021129975

PATIENT
  Age: 44 Year
  Sex: Male

DRUGS (4)
  1. HUMATE?P [Suspect]
     Active Substance: HUMAN COAGULATION FACTOR VIII/VON WILLEBRAND FACTOR COMPLEX
     Indication: VON WILLEBRAND^S DISEASE
     Dosage: 1572?1965 RCOF UNITS, PRN
     Route: 042
     Dates: start: 20210120
  2. HUMATE?P [Suspect]
     Active Substance: HUMAN COAGULATION FACTOR VIII/VON WILLEBRAND FACTOR COMPLEX
     Indication: VON WILLEBRAND^S DISEASE
     Dosage: 1572?1965 RCOF UNITS, PRN
     Route: 042
     Dates: start: 20210120
  3. HUMATE?P [Suspect]
     Active Substance: HUMAN COAGULATION FACTOR VIII/VON WILLEBRAND FACTOR COMPLEX
     Dosage: 3144 INTERNATIONAL UNIT, PRN
     Route: 042
     Dates: start: 20210120
  4. HUMATE?P [Suspect]
     Active Substance: HUMAN COAGULATION FACTOR VIII/VON WILLEBRAND FACTOR COMPLEX
     Dosage: 3144 INTERNATIONAL UNIT, PRN
     Route: 042
     Dates: start: 20210120

REACTIONS (6)
  - Haemorrhage [Not Recovered/Not Resolved]
  - Wrist fracture [Unknown]
  - No adverse event [Unknown]
  - Pain [Unknown]
  - Product dose omission issue [Unknown]
  - Fall [Unknown]

NARRATIVE: CASE EVENT DATE: 20210318
